FAERS Safety Report 4542601-6 (Version None)
Quarter: 2004Q4

REPORT INFORMATION
  Report Type: 
  Country: None (occurrence: None)
  Receive Date: 20041230
  Receipt Date: 20041221
  Transmission Date: 20050328
  Serious: Yes (Hospitalization)
  Sender: FDA-Public Use
  Company Number: US-MERCK-0412USA02587

PATIENT
  Age: 76 Year
  Sex: Male

DRUGS (4)
  1. VIOXX [Suspect]
     Route: 048
     Dates: start: 20000313, end: 20020101
  2. TOPROL-XL [Concomitant]
     Route: 065
  3. LIPITOR [Concomitant]
     Route: 065
  4. ECOTRIN [Concomitant]
     Route: 065

REACTIONS (15)
  - ABDOMINAL PAIN [None]
  - ANAEMIA [None]
  - CARDIAC ENZYMES INCREASED [None]
  - CHEST DISCOMFORT [None]
  - CORONARY ARTERY OCCLUSION [None]
  - DEHYDRATION [None]
  - DIZZINESS [None]
  - GASTROOESOPHAGEAL REFLUX DISEASE [None]
  - HAEMATOMA [None]
  - HYPOTENSION [None]
  - MYOCARDIAL INFARCTION [None]
  - OSTEOARTHRITIS [None]
  - PERIPHERAL VASCULAR DISORDER [None]
  - PROCEDURAL COMPLICATION [None]
  - VERTIGO [None]
